FAERS Safety Report 9536219 (Version 2)
Quarter: 2014Q3

REPORT INFORMATION
  Report Type: Spontaneous
  Country: GB (occurrence: GB)
  Receive Date: 20130919
  Receipt Date: 20140828
  Transmission Date: 20150326
  Serious: Yes (Hospitalization)
  Sender: FDA-Public Use
  Company Number: GB-ACCORD-019390

PATIENT
  Age: 73 Year
  Sex: Male

DRUGS (7)
  1. CO-AMOXICLAV [Concomitant]
     Active Substance: AMOXICILLIN\CLAVULANIC ACID
     Dosage: CO-AMOXICLAV  500/125
     Route: 048
  2. SYNALAR [Concomitant]
     Active Substance: FLUOCINOLONE ACETONIDE
     Route: 061
  3. OMEPRAZOLE. [Concomitant]
     Active Substance: OMEPRAZOLE
     Indication: DYSPEPSIA
     Route: 048
  4. ACCORD GEMCITABINE [Suspect]
     Active Substance: GEMCITABINE HYDROCHLORIDE
     Indication: PANCREATIC CARCINOMA
     Route: 042
     Dates: start: 20130218
  5. COSOPT [Concomitant]
     Active Substance: DORZOLAMIDE HYDROCHLORIDE\TIMOLOL MALEATE
     Indication: GLAUCOMA
     Dosage: DOSAGE WAS : 1 DROP.
     Route: 047
  6. INVESTIGATIONAL DRUG [Suspect]
     Active Substance: INVESTIGATIONAL PRODUCT
     Indication: PANCREATIC CARCINOMA
     Route: 023
     Dates: start: 20130204
  7. BETNOVATE [Concomitant]
     Active Substance: BETAMETHASONE
     Indication: ECZEMA
     Route: 061

REACTIONS (1)
  - Biliary sepsis [Recovered/Resolved]

NARRATIVE: CASE EVENT DATE: 20130801
